FAERS Safety Report 6418159-3 (Version None)
Quarter: 2009Q4

REPORT INFORMATION
  Report Type: 
  Country: None (occurrence: None)
  Receive Date: 20091026
  Receipt Date: 20090902
  Transmission Date: 20100525
  Serious: No
  Sender: FDA-Public Use
  Company Number: US-000841

PATIENT
  Sex: Male
  Weight: 71.2147 kg

DRUGS (4)
  1. DEGARELIX (240 MG, 80 MG) [Suspect]
     Indication: PROSTATE CANCER
     Dosage: 240 MG 1X/MONTH SUBCUTANEOUS, 80 MG 1X/MONTH
     Route: 058
     Dates: start: 20090515, end: 20090515
  2. DEGARELIX (240 MG, 80 MG) [Suspect]
     Indication: PROSTATE CANCER
     Dosage: 240 MG 1X/MONTH SUBCUTANEOUS, 80 MG 1X/MONTH
     Route: 058
     Dates: start: 20090620, end: 20090720
  3. SINEMET [Concomitant]
  4. COMTAN [Concomitant]

REACTIONS (1)
  - DRUG INEFFECTIVE [None]
